FAERS Safety Report 7888853-6 (Version None)
Quarter: 2011Q4

REPORT INFORMATION
  Report Type: 
  Country: None (occurrence: None)
  Receive Date: 20111031
  Receipt Date: 20111019
  Transmission Date: 20120403
  Serious: Yes (Hospitalization)
  Sender: FDA-Public Use
  Company Number: 2011SP047900

PATIENT
  Age: 52 Year
  Sex: Female

DRUGS (1)
  1. NASONEX [Suspect]
     Indication: PRODUCT USED FOR UNKNOWN INDICATION
     Dosage: 1 DF;QD;NAS
     Route: 045
     Dates: start: 20110817, end: 20110825

REACTIONS (7)
  - ANXIETY [None]
  - VITREOUS FLOATERS [None]
  - HEADACHE [None]
  - RETINAL DETACHMENT [None]
  - MALAISE [None]
  - VISION BLURRED [None]
  - PALPITATIONS [None]
